FAERS Safety Report 23978395 (Version 3)
Quarter: 2024Q2

REPORT INFORMATION
  Report Type: Spontaneous
  Country: JP (occurrence: None)
  Receive Date: 20240614
  Receipt Date: 20240628
  Transmission Date: 20240716
  Serious: Yes (Hospitalization, Other)
  Sender: FDA-Public Use
  Company Number: 2024A135182

PATIENT
  Age: 87 Year
  Sex: Male
  Weight: 55 kg

DRUGS (18)
  1. IMFINZI [Suspect]
     Active Substance: DURVALUMAB
     Indication: Bile duct cancer
     Route: 041
     Dates: start: 20240510, end: 20240510
  2. GEMCITABINE HYDROCHLORIDE [Suspect]
     Active Substance: GEMCITABINE HYDROCHLORIDE
     Indication: Bile duct cancer
     Dosage: DOSE UNKNOWN
     Dates: start: 20240510, end: 20240517
  3. BILANOA OD [Concomitant]
     Indication: Neurodermatitis
     Route: 048
     Dates: start: 20230906
  4. RUPAFIN [Concomitant]
     Active Substance: RUPATADINE FUMARATE
     Indication: Neurodermatitis
     Route: 048
     Dates: start: 20230906
  5. PREDONINE [Concomitant]
     Active Substance: PREDNISOLONE
     Indication: Neurodermatitis
     Route: 048
     Dates: start: 20230911
  6. MIRCERA [Concomitant]
     Active Substance: METHOXY POLYETHYLENE GLYCOL-EPOETIN BETA
     Indication: Nephrogenic anaemia
     Route: 058
     Dates: start: 20231226
  7. AZOSEMIDE [Concomitant]
     Active Substance: AZOSEMIDE
     Route: 048
  8. TRICHLORMETHIAZIDE [Concomitant]
     Active Substance: TRICHLORMETHIAZIDE
     Route: 048
     Dates: start: 20231226
  9. AMITIZA [Concomitant]
     Active Substance: LUBIPROSTONE
     Indication: Constipation
     Route: 048
  10. LINZESS [Concomitant]
     Active Substance: LINACLOTIDE
     Indication: Constipation
     Route: 048
  11. AZILSARTAN KAMEDOXOMIL [Concomitant]
     Active Substance: AZILSARTAN KAMEDOXOMIL
     Indication: Hypertension
     Route: 048
  12. AMLODIPINE [Concomitant]
     Active Substance: AMLODIPINE BESYLATE
     Indication: Hypertension
     Route: 048
     Dates: start: 20210601
  13. TENELIA OD [Concomitant]
     Indication: Type 2 diabetes mellitus
     Route: 048
  14. REPAGLINIDE [Concomitant]
     Active Substance: REPAGLINIDE
     Indication: Type 2 diabetes mellitus
     Route: 048
  15. LEVOTHYROXINE [Concomitant]
     Active Substance: LEVOTHYROXINE\LEVOTHYROXINE SODIUM
     Indication: Hypothyroidism
     Route: 048
     Dates: start: 20161213
  16. ASPIRIN [Concomitant]
     Active Substance: ASPIRIN
     Indication: Brain stem infarction
     Route: 048
     Dates: start: 20210515
  17. LANSOPRAZOLE [Concomitant]
     Active Substance: LANSOPRAZOLE
     Indication: Prophylaxis against gastrointestinal ulcer
     Route: 048
     Dates: start: 20210515
  18. URIEF OD [Concomitant]
     Indication: Benign prostatic hyperplasia
     Route: 048

REACTIONS (1)
  - Cholecystitis [Recovering/Resolving]

NARRATIVE: CASE EVENT DATE: 20240601
